FAERS Safety Report 9165924 (Version 1)
Quarter: 2013Q1

REPORT INFORMATION
  Report Type: Report from Study
  Country: HK (occurrence: HK)
  Receive Date: 20130315
  Receipt Date: 20130315
  Transmission Date: 20140127
  Serious: Yes (Other)
  Sender: FDA-Public Use
  Company Number: HK-PFIZER INC-2013079556

PATIENT
  Age: 64 Year
  Sex: Male

DRUGS (4)
  1. IRINOTECAN HCL [Suspect]
     Indication: COLORECTAL CANCER METASTATIC
     Dosage: 180 MG/M2, ON DAY 1, CYCLIC
  2. LEUCOVORIN [Concomitant]
     Indication: COLORECTAL CANCER METASTATIC
     Dosage: 400 MG/M2, ON DAYS 1 AND 2, CYCLIC
  3. FLUOROURACIL [Concomitant]
     Indication: COLORECTAL CANCER METASTATIC
     Dosage: 400 MG/M2, ON DAYS 1 AND 2, CYCLIC
     Route: 040
  4. FLUOROURACIL [Concomitant]
     Dosage: 600 MG/M2, ON DAYS 1 AND 2, CYCLIC
     Route: 041

REACTIONS (1)
  - Hepatitis B [Recovered/Resolved]
